FAERS Safety Report 17815897 (Version 1)
Quarter: 2020Q2

REPORT INFORMATION
  Report Type: Spontaneous
  Country: DE (occurrence: DE)
  Receive Date: 20200522
  Receipt Date: 20200522
  Transmission Date: 20200714
  Serious: Yes (Other)
  Sender: FDA-Public Use
  Company Number: DE-LUPIN PHARMACEUTICALS INC.-2020-02350

PATIENT
  Age: 2 Day
  Sex: Male

DRUGS (8)
  1. EVEROLIMUS. [Suspect]
     Active Substance: EVEROLIMUS
     Indication: RHABDOMYOMA
  2. VIGABATRIN. [Suspect]
     Active Substance: VIGABATRIN
     Indication: EPILEPSY
     Dosage: UNK
     Route: 065
  3. LEVETIRACETAM. [Suspect]
     Active Substance: LEVETIRACETAM
     Indication: EPILEPSY
     Dosage: UNK
     Route: 065
  4. NYSTATIN. [Suspect]
     Active Substance: NYSTATIN
     Indication: PRODUCT USED FOR UNKNOWN INDICATION
     Dosage: UNK
     Route: 065
  5. DIGOXIN. [Suspect]
     Active Substance: DIGOXIN
     Indication: PRODUCT USED FOR UNKNOWN INDICATION
     Dosage: UNK
     Route: 016
  6. EVEROLIMUS. [Suspect]
     Active Substance: EVEROLIMUS
     Indication: TUBEROUS SCLEROSIS COMPLEX
     Dosage: UNK
     Route: 048
  7. SULFAMETHOXAZOLE AND TRIMETHOPRIM [Suspect]
     Active Substance: SULFAMETHOXAZOLE\TRIMETHOPRIM
     Indication: PRODUCT USED FOR UNKNOWN INDICATION
     Dosage: UNK
     Route: 016
  8. EVEROLIMUS. [Suspect]
     Active Substance: EVEROLIMUS
     Indication: ARRHYTHMIA
     Dosage: UNK, QD (1.5-2MG/M2 DAILY)
     Route: 048

REACTIONS (3)
  - Lymphopenia [Recovered/Resolved]
  - Blood cholesterol increased [Unknown]
  - Blood triglycerides increased [Unknown]
